FAERS Safety Report 16305481 (Version 3)
Quarter: 2024Q3

REPORT INFORMATION
  Report Type: Spontaneous
  Country: CA (occurrence: CA)
  Receive Date: 20190513
  Receipt Date: 20240810
  Transmission Date: 20241017
  Serious: Yes (Other)
  Sender: TEVA
  Company Number: CA-TEVA-2019-CA-1050490

PATIENT
  Age: 64 Year
  Sex: Female

DRUGS (6)
  1. CLOBAZAM [Suspect]
     Active Substance: CLOBAZAM
     Indication: Epilepsia partialis continua
     Route: 065
  2. CLONAZEPAM [Suspect]
     Active Substance: CLONAZEPAM
     Indication: Epilepsia partialis continua
     Route: 065
  3. LEVETIRACETAM [Suspect]
     Active Substance: LEVETIRACETAM
     Indication: Epilepsia partialis continua
     Route: 065
  4. LEVETIRACETAM [Suspect]
     Active Substance: LEVETIRACETAM
     Indication: Epilepsia partialis continua
     Route: 065
  5. LACOSAMIDE [Suspect]
     Active Substance: LACOSAMIDE
     Indication: Epilepsia partialis continua
     Route: 065
  6. VIMPAT [Suspect]
     Active Substance: LACOSAMIDE
     Indication: Status epilepticus
     Route: 065

REACTIONS (3)
  - Epilepsia partialis continua [Unknown]
  - Drug ineffective [Unknown]
  - Status epilepticus [Unknown]
